FAERS Safety Report 10533208 (Version 1)
Quarter: 2014Q4

REPORT INFORMATION
  Report Type: Spontaneous
  Country: GB (occurrence: None)
  Receive Date: 20141020
  Receipt Date: 20141020
  Transmission Date: 20150529
  Serious: Yes (Hospitalization)
  Sender: FDA-Public Use
  Company Number: GB2014K4459SPO

PATIENT
  Age: 70 Day
  Sex: Male
  Weight: 97 kg

DRUGS (3)
  1. LANSOPRAZOLE WORLD (LANSOPRAZOLE) UNKNOWN [Suspect]
     Active Substance: LANSOPRAZOLE
     Indication: ACID BASE BALANCE
     Dosage: 30 MG, 1X PER DAY, ORAL
     Route: 048
     Dates: start: 20100410
  2. PI 05272/0009 ALGICON SUSPENSION (ALUMINIUM HYDROXIDE-MAGNESIUM CARBONATE CO-DRIED GEL, MAGNESIUM AIGINATE, MAGNESIUM CARBONATE, POTASSIUM BICARBONATE)? [Concomitant]
  3. BENDROFLUMETHIAZIDE (BENDROFLUAZIDE) [Concomitant]

REACTIONS (11)
  - Hypomagnesaemia [None]
  - Abdominal discomfort [None]
  - Dyspepsia [None]
  - Speech disorder [None]
  - Drug chemical incompatibility [None]
  - Dyspnoea [None]
  - Dizziness [None]
  - Hypophosphataemia [None]
  - Vomiting [None]
  - Nausea [None]
  - Dysstasia [None]

NARRATIVE: CASE EVENT DATE: 20140421
